FAERS Safety Report 8223848-4 (Version None)
Quarter: 2012Q1

REPORT INFORMATION
  Report Type: 
  Country: None (occurrence: None)
  Receive Date: 20120321
  Receipt Date: 20120312
  Transmission Date: 20120608
  Serious: No
  Sender: FDA-Public Use
  Company Number: CA-JNJFOC-20120306766

PATIENT
  Sex: Female
  Weight: 78 kg

DRUGS (1)
  1. INFLIXIMAB, RECOMBINANT [Suspect]
     Indication: CROHN'S DISEASE
     Route: 042
     Dates: start: 20110117

REACTIONS (3)
  - FUNGAL INFECTION [None]
  - COUGH [None]
  - NASOPHARYNGITIS [None]
